FAERS Safety Report 16912841 (Version 4)
Quarter: 2025Q3

REPORT INFORMATION
  Report Type: Spontaneous
  Country: EU (occurrence: EU)
  Receive Date: 20191014
  Receipt Date: 20250822
  Transmission Date: 20251020
  Serious: Yes (Death, Life-Threatening, Other)
  Sender: AUROBINDO
  Company Number: None

PATIENT
  Age: 51 Year
  Sex: Female

DRUGS (14)
  1. IMATINIB [Interacting]
     Active Substance: IMATINIB
     Indication: Chronic myeloid leukaemia
     Route: 065
     Dates: start: 201601, end: 201609
  2. IMATINIB [Interacting]
     Active Substance: IMATINIB
     Indication: Myeloid leukaemia
     Route: 065
     Dates: start: 201601, end: 201707
  3. IMATINIB [Interacting]
     Active Substance: IMATINIB
     Route: 065
     Dates: start: 201705, end: 201707
  4. LETROZOLE [Interacting]
     Active Substance: LETROZOLE
     Indication: Breast cancer
     Route: 065
  5. LETROZOLE [Interacting]
     Active Substance: LETROZOLE
     Indication: Hormone therapy
  6. PACLITAXEL [Interacting]
     Active Substance: PACLITAXEL
     Indication: Breast cancer
     Dosage: UNK, EVERY WEEK
  7. PACLITAXEL [Interacting]
     Active Substance: PACLITAXEL
     Indication: Chronic myeloid leukaemia
     Route: 065
     Dates: start: 201607, end: 201609
  8. PACLITAXEL [Interacting]
     Active Substance: PACLITAXEL
     Route: 065
     Dates: start: 201607, end: 201707
  9. PACLITAXEL [Interacting]
     Active Substance: PACLITAXEL
     Route: 065
     Dates: start: 201705, end: 201707
  10. VINORELBINE [Interacting]
     Active Substance: VINORELBINE TARTRATE
     Indication: Product used for unknown indication
     Route: 065
     Dates: start: 201710, end: 201804
  11. CAPECITABINE [Suspect]
     Active Substance: CAPECITABINE
     Indication: Product used for unknown indication
     Route: 065
  12. CAPECITABINE [Suspect]
     Active Substance: CAPECITABINE
     Route: 065
     Dates: start: 201707
  13. TAMOXIFEN [Interacting]
     Active Substance: TAMOXIFEN
     Indication: Breast cancer
     Route: 065
  14. TAMOXIFEN [Interacting]
     Active Substance: TAMOXIFEN
     Indication: Hormone therapy
     Route: 065

REACTIONS (10)
  - Polyneuropathy [Fatal]
  - Chronic myeloid leukaemia [Fatal]
  - Drug interaction [Fatal]
  - Disease progression [Fatal]
  - Drug ineffective [Unknown]
  - Breast cancer [Unknown]
  - Thrombocytopenia [Unknown]
  - Therapy partial responder [Unknown]
  - Anaemia [Unknown]
  - Off label use [Unknown]

NARRATIVE: CASE EVENT DATE: 20160101
